FAERS Safety Report 13372702 (Version 1)
Quarter: 2017Q1

REPORT INFORMATION
  Report Type: Spontaneous
  Country: US (occurrence: US)
  Receive Date: 20170327
  Receipt Date: 20170327
  Transmission Date: 20170429
  Serious: No
  Sender: FDA-Public Use
  Company Number: US-JNJFOC-20170321464

PATIENT
  Age: 94 Year
  Sex: Male
  Weight: 74.84 kg

DRUGS (5)
  1. VITAMIN D3 [Concomitant]
     Active Substance: CHOLECALCIFEROL
     Route: 065
  2. LEVAQUIN [Suspect]
     Active Substance: LEVOFLOXACIN
     Indication: BRONCHITIS
     Route: 048
     Dates: start: 20170315, end: 201703
  3. LEVAQUIN [Suspect]
     Active Substance: LEVOFLOXACIN
     Indication: BRONCHITIS
     Dosage: THE 13TH AND 14TH HE RECEIVED 2 DOSES OF IV LEVAQUIN FOLLOWED BY ONE DOSE OF IV LEVAQUIN ON THE 15TH
     Route: 042
     Dates: start: 20170312, end: 20170315
  4. DOXAZOSIN [Concomitant]
     Active Substance: DOXAZOSIN\DOXAZOSIN MESYLATE
     Route: 065
  5. SIMVASTATIN. [Concomitant]
     Active Substance: SIMVASTATIN
     Indication: CEREBROVASCULAR ACCIDENT PROPHYLAXIS
     Route: 065

REACTIONS (4)
  - Hypoacusis [Unknown]
  - Oedema peripheral [Not Recovered/Not Resolved]
  - Body height decreased [Unknown]
  - Tendonitis [Recovered/Resolved]

NARRATIVE: CASE EVENT DATE: 201703
